FAERS Safety Report 23627559 (Version 1)
Quarter: 2024Q1

REPORT INFORMATION
  Report Type: Spontaneous
  Country: US (occurrence: US)
  Receive Date: 20240313
  Receipt Date: 20240313
  Transmission Date: 20240410
  Serious: Yes (Hospitalization, Other)
  Sender: FDA-Public Use
  Company Number: US-009507513-2403USA001864

PATIENT
  Age: 56 Year
  Sex: Female

DRUGS (7)
  1. KEYTRUDA [Suspect]
     Active Substance: PEMBROLIZUMAB
     Indication: Cervix carcinoma
     Dosage: UNK, EVERY 3 WEEKS (Q3W) (FIRST ROUND)
  2. KEYTRUDA [Suspect]
     Active Substance: PEMBROLIZUMAB
     Dosage: UNK, Q3W (SECOND ROUND)
     Dates: start: 20240223
  3. CARBOPLATIN [Suspect]
     Active Substance: CARBOPLATIN
     Indication: Cervix carcinoma
     Dosage: UNK
  4. CARBOPLATIN [Suspect]
     Active Substance: CARBOPLATIN
     Dosage: UNK
  5. TAXOL [Suspect]
     Active Substance: PACLITAXEL
     Indication: Cervix carcinoma
     Dosage: UNK
     Dates: end: 20240125
  6. MARINOL [Suspect]
     Active Substance: DRONABINOL
     Dosage: 5 MILLIGRAM
     Dates: start: 2024
  7. MARINOL [Suspect]
     Active Substance: DRONABINOL
     Dosage: 2.5 MILLIGRAM
     Dates: start: 2024

REACTIONS (21)
  - Cervix carcinoma recurrent [Unknown]
  - Weight decreased [Unknown]
  - Malignant neoplasm progression [Unknown]
  - Neuropathy peripheral [Unknown]
  - Drug hypersensitivity [Unknown]
  - Vomiting [Unknown]
  - Nausea [Unknown]
  - Blood pressure increased [Unknown]
  - Renal disorder [Unknown]
  - Dyspepsia [Unknown]
  - Constipation [Unknown]
  - Eructation [Unknown]
  - Abdominal distension [Unknown]
  - Asthenia [Unknown]
  - Gait disturbance [Unknown]
  - Feeling of despair [Unknown]
  - Pain [Unknown]
  - Quality of life decreased [Unknown]
  - Depressed mood [Unknown]
  - Crying [Unknown]
  - Malaise [Unknown]

NARRATIVE: CASE EVENT DATE: 20240101
